FAERS Safety Report 4695509-X (Version None)
Quarter: 2005Q2

REPORT INFORMATION
  Report Type: 
  Country: None (occurrence: None)
  Receive Date: 20050621
  Receipt Date: 20050609
  Transmission Date: 20051028
  Serious: Yes (Other)
  Sender: FDA-Public Use
  Company Number: PHBS2005BE08450

PATIENT
  Age: 59 Year
  Sex: Male

DRUGS (9)
  1. ZOMETA [Suspect]
     Indication: MULTIPLE MYELOMA
     Dosage: EVERY 6 WEEKS
     Route: 042
     Dates: start: 20030501
  2. AREDIA [Suspect]
     Indication: MULTIPLE MYELOMA
     Dosage: EVERY 6 WEEKS
     Route: 042
     Dates: start: 20000401, end: 20030501
  3. MELPHALAN [Concomitant]
     Route: 065
     Dates: start: 20000401
  4. MELPHALAN [Concomitant]
     Route: 065
     Dates: start: 20050101
  5. PREDNISONE TAB [Concomitant]
     Route: 065
     Dates: start: 20000401
  6. VINCRISTINE + ADRIAMYCIN + DEXAMETHASONE [Concomitant]
     Route: 065
     Dates: start: 20040701, end: 20041001
  7. ENDOXAN [Concomitant]
     Route: 065
     Dates: start: 20041120
  8. BONE MARROW TRANSPLANT [Concomitant]
     Dosage: STEM CELL TRANSPLANTATION
     Route: 065
     Dates: start: 20041120
  9. BONE MARROW TRANSPLANT [Concomitant]
     Dosage: AUTOLOGOUS STEM CELL TRANSPLANTATION
     Route: 065
     Dates: start: 20050107

REACTIONS (8)
  - ACTINOMYCOSIS [None]
  - ASEPTIC NECROSIS BONE [None]
  - IMPAIRED HEALING [None]
  - MALIGNANT NEOPLASM PROGRESSION [None]
  - PRIMARY SEQUESTRUM [None]
  - SEQUESTRECTOMY [None]
  - TOOTH EXTRACTION [None]
  - WOUND DEBRIDEMENT [None]
